FAERS Safety Report 14523782 (Version 2)
Quarter: 2018Q1

REPORT INFORMATION
  Report Type: Spontaneous
  Country: ES (occurrence: ES)
  Receive Date: 20180213
  Receipt Date: 20180312
  Transmission Date: 20180509
  Serious: Yes (Life-Threatening, Hospitalization)
  Sender: FDA-Public Use
  Company Number: ES-ROCHE-2065645

PATIENT
  Age: 44 Year
  Sex: Male

DRUGS (7)
  1. RILPIVIRINE [Suspect]
     Active Substance: RILPIVIRINE
     Indication: HIV INFECTION
     Dosage: DATE IF MOST RECENT DOSE: 07/NOV/2014
     Route: 048
     Dates: start: 20141010
  2. CABOTEGRAVIR [Suspect]
     Active Substance: CABOTEGRAVIR
     Dosage: SINGLE
     Route: 030
     Dates: start: 20141107, end: 20141107
  3. TMC278 [Suspect]
     Active Substance: DARUNAVIR
     Indication: HIV INFECTION
     Dosage: 600 MG, CYC
     Route: 030
     Dates: start: 20141107
  4. METOCLOPRAMIDE. [Concomitant]
     Active Substance: METOCLOPRAMIDE
     Indication: VOMITING
     Route: 065
  5. DIAZEPAM. [Suspect]
     Active Substance: DIAZEPAM
     Indication: CELL DEATH
     Route: 048
     Dates: start: 20170918, end: 20170918
  6. CABOTEGRAVIR [Suspect]
     Active Substance: CABOTEGRAVIR
     Route: 030
     Dates: start: 20141205
  7. CABOTEGRAVIR [Suspect]
     Active Substance: CABOTEGRAVIR
     Indication: HIV INFECTION
     Route: 048
     Dates: start: 20140620, end: 20141107

REACTIONS (6)
  - Renal failure [Recovered/Resolved]
  - Cardiogenic shock [Recovered/Resolved]
  - Carbon monoxide poisoning [Recovered/Resolved]
  - Toxicity to various agents [Recovered/Resolved]
  - Pneumonia aspiration [Recovered/Resolved]
  - Suicide attempt [Unknown]

NARRATIVE: CASE EVENT DATE: 20170918
